FAERS Safety Report 7338149-6 (Version None)
Quarter: 2011Q1

REPORT INFORMATION
  Report Type: 
  Country: None (occurrence: None)
  Receive Date: 20110308
  Receipt Date: 20110223
  Transmission Date: 20110831
  Serious: Yes (Hospitalization)
  Sender: FDA-Public Use
  Company Number: FR-ELI_LILLY_AND_COMPANY-FR201103000382

PATIENT
  Sex: Female

DRUGS (8)
  1. OXYBUTYNIN [Concomitant]
  2. TARDYFERON [Concomitant]
  3. CO-APROVEL [Concomitant]
  4. ZOPICLONE [Concomitant]
     Dosage: 0.5 D/F, DAILY (1/D)
  5. CYMBALTA [Suspect]
     Indication: DEPRESSION
     Dosage: 60 MG, DAILY (1/D)
     Route: 048
     Dates: start: 20080704, end: 20080715
  6. INIPOMP [Concomitant]
     Dosage: 20 MG, DAILY (1/D)
     Route: 047
     Dates: end: 20080715
  7. DITROPAN [Concomitant]
     Dosage: 5 MG, DAILY (1/D)
     Route: 048
     Dates: end: 20080715
  8. TANAKAN [Concomitant]

REACTIONS (7)
  - CONFUSIONAL STATE [None]
  - DELUSION [None]
  - COGNITIVE DISORDER [None]
  - AGGRESSION [None]
  - ANXIETY [None]
  - PARANOIA [None]
  - NEGATIVISM [None]
